FAERS Safety Report 8201526-5 (Version None)
Quarter: 2012Q1

REPORT INFORMATION
  Report Type: 
  Country: None (occurrence: None)
  Receive Date: 20120312
  Receipt Date: 20111123
  Transmission Date: 20120608
  Serious: Yes (Disabling)
  Sender: FDA-Public Use
  Company Number: GR-GLAXOSMITHKLINE-B0765735A

PATIENT
  Age: 42 Year
  Sex: Female

DRUGS (2)
  1. ARIXTRA [Suspect]
     Indication: ORTHOPEDIC PROCEDURE
     Route: 065
  2. EPIDURAL [Concomitant]
     Indication: ANALGESIC THERAPY

REACTIONS (2)
  - PARALYSIS [None]
  - EXTRADURAL HAEMATOMA [None]
